FAERS Safety Report 18176885 (Version 1)
Quarter: 2020Q3

REPORT INFORMATION
  Report Type: Spontaneous
  Country: US (occurrence: US)
  Receive Date: 20200820
  Receipt Date: 20200820
  Transmission Date: 20201103
  Serious: Yes (Other)
  Sender: FDA-Public Use
  Company Number: US-ALLERGAN-2031436US

PATIENT
  Sex: Female

DRUGS (1)
  1. BOTOX [Suspect]
     Active Substance: ONABOTULINUMTOXINA
     Indication: PELVIC PAIN
     Dosage: UNK, SINGLE

REACTIONS (3)
  - Off label use [Unknown]
  - Guillain-Barre syndrome [Unknown]
  - Pain [Unknown]
